FAERS Safety Report 8112920-5 (Version None)
Quarter: 2012Q1

REPORT INFORMATION
  Report Type: 
  Country: None (occurrence: None)
  Receive Date: 20120203
  Receipt Date: 20120127
  Transmission Date: 20120608
  Serious: Yes (Hospitalization)
  Sender: FDA-Public Use
  Company Number: DE-ACTELION-A-US2012-60363

PATIENT

DRUGS (2)
  1. VENTAVIS [Suspect]
     Indication: PULMONARY ARTERIAL HYPERTENSION
     Dosage: UNK
     Route: 055
     Dates: start: 20111218
  2. TRACLEER [Concomitant]
     Indication: PULMONARY ARTERIAL HYPERTENSION

REACTIONS (2)
  - FLUID RETENTION [None]
  - GASTRIC HAEMORRHAGE [None]
